FAERS Safety Report 22022799 (Version 1)
Quarter: 2023Q1

REPORT INFORMATION
  Report Type: Spontaneous
  Country: US (occurrence: US)
  Receive Date: 20230222
  Receipt Date: 20230222
  Transmission Date: 20230418
  Serious: Yes (Death, Other)
  Sender: FDA-Public Use
  Company Number: US-BAYER-2023A017692

PATIENT
  Age: 78 Year
  Sex: Female

DRUGS (2)
  1. STIVARGA [Suspect]
     Active Substance: REGORAFENIB
     Dosage: 80 MG, QD, FOR TEN DAYS
  2. STIVARGA [Suspect]
     Active Substance: REGORAFENIB
     Dosage: 120 MG, QD, FOR 3 DAYS.

REACTIONS (5)
  - Death [Fatal]
  - Dyspnoea [None]
  - Acidosis [None]
  - Rash [None]
  - Off label use [None]

NARRATIVE: CASE EVENT DATE: 20230125
